FAERS Safety Report 14787788 (Version 6)
Quarter: 2019Q2

REPORT INFORMATION
  Report Type: Spontaneous
  Country: US (occurrence: US)
  Receive Date: 20180422
  Receipt Date: 20190423
  Transmission Date: 20190711
  Serious: Yes (Other)
  Sender: FDA-Public Use
  Company Number: US-ASTRAZENECA-2018SE49123

PATIENT
  Sex: Female

DRUGS (13)
  1. PRILOSEC OTC [Suspect]
     Active Substance: OMEPRAZOLE MAGNESIUM
     Route: 048
  2. NEXIUM [Suspect]
     Active Substance: ESOMEPRAZOLE MAGNESIUM
     Route: 048
     Dates: start: 20121204
  3. PREVACID 24 HR [Suspect]
     Active Substance: LANSOPRAZOLE
     Route: 048
  4. ESCITALOPRAM [Concomitant]
     Active Substance: ESCITALOPRAM OXALATE
  5. NEXIUM 24HR [Suspect]
     Active Substance: ESOMEPRAZOLE MAGNESIUM
     Route: 048
  6. DEXILANT [Suspect]
     Active Substance: DEXLANSOPRAZOLE
     Route: 048
  7. SIMVASTATIN. [Concomitant]
     Active Substance: SIMVASTATIN
  8. MELOXICAM. [Concomitant]
     Active Substance: MELOXICAM
  9. PRILOSEC [Suspect]
     Active Substance: OMEPRAZOLE MAGNESIUM
     Route: 048
     Dates: start: 20121024
  10. PREVACID [Suspect]
     Active Substance: LANSOPRAZOLE
     Route: 048
  11. NEXIUM [Suspect]
     Active Substance: ESOMEPRAZOLE MAGNESIUM
     Route: 048
  12. GABITRIL [Concomitant]
     Active Substance: TIAGABINE HYDROCHLORIDE
  13. PROTONIX [Suspect]
     Active Substance: PANTOPRAZOLE SODIUM
     Route: 048

REACTIONS (3)
  - Chronic kidney disease [Unknown]
  - Rebound acid hypersecretion [Unknown]
  - Renal failure [Unknown]
